FAERS Safety Report 4540967-4 (Version None)
Quarter: 2004Q4

REPORT INFORMATION
  Report Type: 
  Country: None (occurrence: None)
  Receive Date: 20041228
  Receipt Date: 20041222
  Transmission Date: 20050328
  Serious: No
  Sender: FDA-Public Use
  Company Number: 2004AC01043

PATIENT
  Age: 50 Year
  Sex: Male

DRUGS (3)
  1. NEXIUM [Suspect]
     Dosage: START + STOP DATE ESTIMATED
     Dates: start: 20041128, end: 20041212
  2. CELEBREX [Concomitant]
  3. MYOLASTAN [Concomitant]

REACTIONS (1)
  - ACCOMMODATION DISORDER [None]
